FAERS Safety Report 21271984 (Version 1)
Quarter: 2022Q3

REPORT INFORMATION
  Report Type: Report from Study
  Country: US (occurrence: US)
  Receive Date: 20220830
  Receipt Date: 20220830
  Transmission Date: 20221027
  Serious: Yes (Hospitalization, Other)
  Sender: FDA-Public Use
  Company Number: US-ABBVIE-22K-163-4518777-00

PATIENT
  Sex: Female

DRUGS (6)
  1. SKYRIZI [Suspect]
     Active Substance: RISANKIZUMAB-RZAA
     Indication: Psoriasis
     Route: 058
  2. MODERNA COVID-19 VACCINE [Concomitant]
     Active Substance: ELASOMERAN
     Indication: COVID-19 immunisation
     Dosage: FIRST DOSE
     Route: 030
     Dates: start: 20210612, end: 20210612
  3. MODERNA COVID-19 VACCINE [Concomitant]
     Active Substance: ELASOMERAN
     Dosage: SECOND DOSE
     Route: 030
     Dates: start: 20210712, end: 20210712
  4. MODERNA COVID-19 VACCINE [Concomitant]
     Active Substance: ELASOMERAN
     Dosage: BOOSTER DOSE
     Route: 030
     Dates: start: 20220501, end: 20220501
  5. STELARA [Concomitant]
     Active Substance: USTEKINUMAB
     Indication: Product used for unknown indication
  6. ENBREL [Concomitant]
     Active Substance: ETANERCEPT
     Indication: Product used for unknown indication

REACTIONS (13)
  - Knee operation [Unknown]
  - Hospitalisation [Unknown]
  - Chronic obstructive pulmonary disease [Recovered/Resolved]
  - Aphonia [Recovered/Resolved]
  - Respiratory tract congestion [Unknown]
  - Scoliosis [Unknown]
  - Osteoporosis [Unknown]
  - Knee deformity [Unknown]
  - Arthropathy [Unknown]
  - Back disorder [Unknown]
  - Nerve injury [Unknown]
  - Psoriasis [Unknown]
  - Back pain [Unknown]
